FAERS Safety Report 5131082-X (Version None)
Quarter: 2006Q3

REPORT INFORMATION
  Report Type: 
  Country: None (occurrence: None)
  Receive Date: 20060825
  Receipt Date: 20050722
  Transmission Date: 20061208
  Serious: Yes (Hospitalization)
  Sender: FDA-Public Use
  Company Number: 2005103102

PATIENT
  Age: 56 Year
  Sex: Male

DRUGS (32)
  1. VFEND [Suspect]
     Indication: CEREBRAL ASPERGILLOSIS
     Dosage: 800 MG (400 MG,BID),ORAL
     Route: 048
     Dates: start: 20050712
  2. VFEND [Suspect]
     Indication: CEREBRAL FUNGAL INFECTION
     Dosage: 800 MG (400 MG,BID),ORAL
     Route: 048
     Dates: start: 20050712
  3. ACETAMINOPHEN [Concomitant]
  4. ACYCLOVIR [Concomitant]
  5. AMIODARONE HCL [Concomitant]
  6. AMPHOTERICIN B [Concomitant]
  7. CASPOFUNGIN (CASPOFUNGIN) [Concomitant]
  8. ROCEPHIN [Concomitant]
  9. FOSPHENYTOIN SODIUM [Concomitant]
  10. DEXTROSE [Concomitant]
  11. DOPAMINE HCL [Concomitant]
  12. FENTANYL [Concomitant]
  13. HYDROCORTISONE [Concomitant]
  14. INSULIN (INSULIN) [Concomitant]
  15. ATROVENT [Concomitant]
  16. LABETALOL HCL [Concomitant]
  17. LIDOCAINE [Concomitant]
  18. MAGNESIUM (MAGNESIUM) [Concomitant]
  19. METRONIDAZOLE [Concomitant]
  20. MIDAZOLAM HCL [Concomitant]
  21. BACTROBAN (MUPIROCIN) [Concomitant]
  22. NYSTATIN [Concomitant]
  23. PROTONIX [Concomitant]
  24. PENTAMIDINE (PENTAMIDINE) [Concomitant]
  25. POTASSIUM CHLORIDE [Concomitant]
  26. SODIUM CHLORIDE [Concomitant]
  27. SODIUM PHOSPHATE (SODIUM PHOSPHATE) [Concomitant]
  28. TOTAL PARENTERAL NUTRITION (TOTAL PARENTERAL NUTRITION) [Concomitant]
  29. VASOPRESSIN INJECTION (VASOPRESSIN INJECTION) [Concomitant]
  30. ALBUMIN (HUMAN) [Concomitant]
  31. AMIKACIN [Concomitant]
  32. VANCOMYCIN [Concomitant]

REACTIONS (1)
  - DRUG INEFFECTIVE [None]
